FAERS Safety Report 16281836 (Version 3)
Quarter: 2019Q2

REPORT INFORMATION
  Report Type: Report from Study
  Country: None (occurrence: CA)
  Receive Date: 20190507
  Receipt Date: 20190611
  Transmission Date: 20190711
  Serious: Yes (Death, Other)
  Sender: FDA-Public Use
  Company Number: CA-ABBVIE-19S-028-2772602-00

PATIENT
  Sex: Male
  Weight: 88 kg

DRUGS (5)
  1. ROSUVASTATIN. [Concomitant]
     Active Substance: ROSUVASTATIN
     Indication: DYSLIPIDAEMIA
     Route: 048
     Dates: start: 2011
  2. IRBESARTAN. [Concomitant]
     Active Substance: IRBESARTAN
     Indication: HYPERTENSION
  3. ROSUVASTATIN. [Concomitant]
     Active Substance: ROSUVASTATIN
     Indication: HYPERTENSION
  4. LUPRON DEPOT [Suspect]
     Active Substance: LEUPROLIDE ACETATE
     Indication: PROSTATE CANCER
     Route: 030
     Dates: start: 20171011
  5. IRBESARTAN. [Concomitant]
     Active Substance: IRBESARTAN
     Indication: DYSLIPIDAEMIA
     Route: 048
     Dates: start: 2011

REACTIONS (9)
  - Coronary artery occlusion [Unknown]
  - Myocardial infarction [Fatal]
  - Dyspnoea [Unknown]
  - Dyspnoea [Fatal]
  - Fall [Fatal]
  - Ventricular tachycardia [Unknown]
  - Pericardial effusion [Unknown]
  - Medical device site haemorrhage [Unknown]
  - Asthenia [Unknown]
